FAERS Safety Report 7006326-X (Version None)
Quarter: 2010Q3

REPORT INFORMATION
  Report Type: 
  Country: None (occurrence: None)
  Receive Date: 20100921
  Receipt Date: 20100908
  Transmission Date: 20110219
  Serious: Yes (Death, Hospitalization)
  Sender: FDA-Public Use
  Company Number: US-WATSON-2010-12240

PATIENT
  Age: 56 Year
  Sex: Female

DRUGS (3)
  1. MIRTAZAPINE [Suspect]
     Indication: INSOMNIA
     Dosage: 15 MG, QPM
  2. DULOXETINE [Suspect]
     Indication: DEPRESSION
     Dosage: 60 MG, DAILY
  3. DULOXETINE [Suspect]
     Dosage: 30 MG, DAILY

REACTIONS (2)
  - ACUTE HEPATIC FAILURE [None]
  - DRUG INTERACTION [None]
